FAERS Safety Report 8183330 (Version 12)
Quarter: 2013Q3

REPORT INFORMATION
  Report Type: Spontaneous
  Country: US (occurrence: US)
  Receive Date: 20111017
  Receipt Date: 20130808
  Transmission Date: 20140515
  Serious: Yes (Death, Hospitalization, Other)
  Sender: FDA-Public Use
  Company Number: PHEH2011US06721

PATIENT
  Sex: Female

DRUGS (21)
  1. ZOMETA [Suspect]
     Indication: METASTASES TO BONE
     Dosage: 4 MG, QMO
     Route: 042
  2. ZOMETA [Suspect]
     Indication: OSTEOPOROSIS
  3. CHEMOTHERAPEUTICS [Suspect]
  4. WARFARIN SODIUM [Concomitant]
  5. ROXANOL [Concomitant]
  6. MACROBID [Concomitant]
  7. HALDOL [Concomitant]
  8. ATROPIN SULFATE [Concomitant]
  9. ATIVAN [Concomitant]
  10. COMPAZINE [Concomitant]
  11. OXYCODON [Concomitant]
  12. OMEPRAZOLE [Concomitant]
  13. LASIX [Concomitant]
  14. REGLAN                                  /USA/ [Concomitant]
  15. XANAX [Concomitant]
  16. NEXIUM//ESOMEPRAZOLE SODIUM [Concomitant]
  17. HEPARIN [Concomitant]
  18. DEXAMETHASONE [Concomitant]
     Dosage: 4 MG, BID
  19. COUMADINE [Concomitant]
     Dosage: 3 MG, QID
  20. FENTANYL [Concomitant]
  21. NEURONTIN [Concomitant]
     Dosage: 400 MG, QID

REACTIONS (113)
  - Death [Fatal]
  - Pyrexia [Unknown]
  - Dyspnoea [Unknown]
  - Osteonecrosis of jaw [Unknown]
  - Injury [Unknown]
  - Pain [Unknown]
  - Emotional distress [Unknown]
  - Anxiety [Unknown]
  - Physical disability [Unknown]
  - Deformity [Unknown]
  - Onychomycosis [Unknown]
  - Dizziness [Unknown]
  - Chest wall mass [Unknown]
  - Urinary incontinence [Unknown]
  - Vaginal discharge [Unknown]
  - Spinal osteoarthritis [Unknown]
  - Aortic arteriosclerosis [Unknown]
  - Scoliosis [Unknown]
  - Ascites [Unknown]
  - Ileus paralytic [Unknown]
  - Neuropathy peripheral [Unknown]
  - Pulmonary embolism [Unknown]
  - Pleural effusion [Unknown]
  - Atelectasis [Unknown]
  - Osteoporosis [Unknown]
  - Respiratory failure [Unknown]
  - Influenza [Unknown]
  - Arthritis [Unknown]
  - Deep vein thrombosis [Unknown]
  - Small cell lung cancer metastatic [Unknown]
  - Fall [Unknown]
  - Ataxia [Unknown]
  - Sinus disorder [Unknown]
  - Swelling face [Unknown]
  - Urinary tract infection [Unknown]
  - Lumbar radiculopathy [Unknown]
  - Bullous lung disease [Unknown]
  - Intervertebral disc protrusion [Unknown]
  - Compression fracture [Unknown]
  - Gastrooesophageal reflux disease [Unknown]
  - Basal cell carcinoma [Unknown]
  - Second primary malignancy [Unknown]
  - Cellulitis [Unknown]
  - Clostridial infection [Unknown]
  - Neutropenia [Unknown]
  - Depression [Unknown]
  - Cachexia [Unknown]
  - Ecchymosis [Unknown]
  - Anaemia [Unknown]
  - Neurotoxicity [Unknown]
  - Osteoarthritis [Unknown]
  - Rib fracture [Unknown]
  - Pulmonary fibrosis [Unknown]
  - Aortic calcification [Unknown]
  - Bone loss [Unknown]
  - Osteosclerosis [Unknown]
  - Bone sarcoma [Unknown]
  - Palmar-plantar erythrodysaesthesia syndrome [Unknown]
  - Tracheal disorder [Unknown]
  - Nervous system disorder [Unknown]
  - Cataract [Unknown]
  - Squamous cell carcinoma [Unknown]
  - Seborrhoeic keratosis [Unknown]
  - Transient acantholytic dermatosis [Unknown]
  - Lichen planus [Unknown]
  - Staphylococcal skin infection [Unknown]
  - Nodule [Unknown]
  - Intervertebral disc degeneration [Unknown]
  - Malignant neoplasm progression [Unknown]
  - Osteolysis [Unknown]
  - Dermoid cyst [Unknown]
  - Actinic keratosis [Unknown]
  - Bone cancer [Unknown]
  - Osteonecrosis [Unknown]
  - Cerebral atrophy [Unknown]
  - Hypertrophy [Unknown]
  - Facet joint syndrome [Unknown]
  - Spinal column stenosis [Unknown]
  - Ligament disorder [Unknown]
  - Catheter site discharge [Unknown]
  - Metastases to spine [Not Recovered/Not Resolved]
  - Abscess [Unknown]
  - Paronychia [Unknown]
  - Skin atrophy [Unknown]
  - Bone lesion [Unknown]
  - Bursa disorder [Unknown]
  - Exostosis [Unknown]
  - Palmoplantar keratoderma [Unknown]
  - Decubitus ulcer [Unknown]
  - Sarcoma [Unknown]
  - Dermatophytosis [Unknown]
  - Foot deformity [Unknown]
  - Cyst [Unknown]
  - Dupuytren^s contracture [Unknown]
  - Trigger finger [Unknown]
  - Diverticulum [Unknown]
  - Pathological fracture [Unknown]
  - Vertebral foraminal stenosis [Unknown]
  - Thrombocytopenia [Unknown]
  - Muscular weakness [Unknown]
  - Dry skin [Unknown]
  - Ingrowing nail [Unknown]
  - Erythema [Unknown]
  - Tenderness [Unknown]
  - Onychalgia [Unknown]
  - Inflammation [Unknown]
  - Bursitis [Unknown]
  - Hypoaesthesia [Unknown]
  - Skin exfoliation [Unknown]
  - Oedema peripheral [Unknown]
  - Weight decreased [Unknown]
  - Insomnia [Unknown]
  - Diarrhoea [Unknown]
